FAERS Safety Report 8245504-9 (Version None)
Quarter: 2012Q1

REPORT INFORMATION
  Report Type: 
  Country: None (occurrence: None)
  Receive Date: 20120329
  Receipt Date: 20120323
  Transmission Date: 20120608
  Serious: Yes (Hospitalization)
  Sender: FDA-Public Use
  Company Number: US-ASTRAZENECA-2012SE20041

PATIENT
  Age: 15726 Day
  Sex: Female
  Weight: 65.8 kg

DRUGS (6)
  1. SEROQUEL XR [Suspect]
     Indication: PSYCHOTHERAPY
     Dosage: 200 MG IN THE MORNING AND 300 MG AT NIGHT
     Route: 048
     Dates: start: 20090701
  2. DEPAKOTE [Concomitant]
     Indication: DISSOCIATIVE DISORDER
  3. ZOLOFT [Concomitant]
     Indication: DEPRESSION
  4. KLONOPIN [Concomitant]
     Indication: ANXIETY
  5. PRAZIN [Concomitant]
     Indication: TREMOR
  6. DEPAKOTE [Concomitant]
     Indication: CONVERSION DISORDER

REACTIONS (3)
  - SUICIDAL IDEATION [None]
  - INTENTIONAL SELF-INJURY [None]
  - OFF LABEL USE [None]
